FAERS Safety Report 25679664 (Version 18)
Quarter: 2025Q4

REPORT INFORMATION
  Report Type: Report from Study
  Country: EU (occurrence: EU)
  Receive Date: 20250814
  Receipt Date: 20251229
  Transmission Date: 20260118
  Serious: Yes (Other)
  Sender: JOHNSON AND JOHNSON
  Company Number: EU-JNJFOC-20250603520

PATIENT
  Age: 56 Year
  Sex: Male
  Weight: 66 kg

DRUGS (24)
  1. UPTRAVI [Suspect]
     Active Substance: SELEXIPAG
     Indication: Pulmonary arterial hypertension
     Route: 048
     Dates: start: 20250524
  2. UPTRAVI [Suspect]
     Active Substance: SELEXIPAG
     Route: 048
     Dates: start: 20250526
  3. UPTRAVI [Suspect]
     Active Substance: SELEXIPAG
     Route: 048
     Dates: start: 20250606
  4. UPTRAVI [Suspect]
     Active Substance: SELEXIPAG
     Route: 048
     Dates: start: 20250613
  5. UPTRAVI [Suspect]
     Active Substance: SELEXIPAG
     Route: 048
     Dates: start: 20250625
  6. UPTRAVI [Suspect]
     Active Substance: SELEXIPAG
     Route: 048
     Dates: start: 20250622
  7. UPTRAVI [Suspect]
     Active Substance: SELEXIPAG
     Route: 048
     Dates: start: 20250625
  8. UPTRAVI [Suspect]
     Active Substance: SELEXIPAG
     Dosage: MORNING: 600 UG AND EVENING 800 UG
     Route: 048
     Dates: start: 20250804
  9. UPTRAVI [Suspect]
     Active Substance: SELEXIPAG
     Route: 048
     Dates: start: 20250810
  10. UPTRAVI [Suspect]
     Active Substance: SELEXIPAG
     Route: 048
     Dates: start: 20250908
  11. UPTRAVI [Suspect]
     Active Substance: SELEXIPAG
     Route: 048
     Dates: start: 20250909
  12. UPTRAVI [Suspect]
     Active Substance: SELEXIPAG
     Dosage: MORNING: 600 UG AND EVENING 800 UG
     Route: 048
     Dates: start: 20250908
  13. UPTRAVI [Suspect]
     Active Substance: SELEXIPAG
     Route: 048
     Dates: start: 20251007
  14. UPTRAVI [Suspect]
     Active Substance: SELEXIPAG
     Route: 048
     Dates: start: 20251107
  15. UPTRAVI [Suspect]
     Active Substance: SELEXIPAG
     Dosage: THERAPY START DATE 13-NOV-2025
     Route: 048
     Dates: start: 20251113
  16. UPTRAVI [Suspect]
     Active Substance: SELEXIPAG
     Dosage: THERAPY START DATE 07-NOV-2025
     Route: 048
     Dates: start: 20251007
  17. UPTRAVI [Suspect]
     Active Substance: SELEXIPAG
     Dosage: THERAPY START DATE 24-MAY-2025
     Route: 048
  18. UPTRAVI [Suspect]
     Active Substance: SELEXIPAG
     Dosage: MORNING AND EVENING
     Route: 048
  19. SOTATERCEPT [Suspect]
     Active Substance: SOTATERCEPT
     Indication: Pulmonary arterial hypertension
  20. SOTATERCEPT [Suspect]
     Active Substance: SOTATERCEPT
  21. BOSENTAN [Concomitant]
     Active Substance: BOSENTAN
     Indication: Pulmonary arterial hypertension
  22. SILDENAFIL [Concomitant]
     Active Substance: SILDENAFIL
     Indication: Pulmonary arterial hypertension
  23. OFLOXACIN [Concomitant]
     Active Substance: OFLOXACIN
     Indication: Product used for unknown indication
  24. TADALAFIL [Concomitant]
     Active Substance: TADALAFIL
     Indication: Product used for unknown indication

REACTIONS (18)
  - Hot flush [Not Recovered/Not Resolved]
  - Lip dry [Recovering/Resolving]
  - Bronchitis [Recovered/Resolved]
  - Catheterisation cardiac [Unknown]
  - Headache [Recovered/Resolved]
  - Diarrhoea [Recovered/Resolved]
  - Haemorrhoids [Recovered/Resolved]
  - Balanoposthitis infective [Recovered/Resolved]
  - Tonsillitis [Recovering/Resolving]
  - Ear, nose and throat infection [Recovering/Resolving]
  - Nasopharyngitis [Recovering/Resolving]
  - Urinary tract infection [Not Recovered/Not Resolved]
  - Dyspnoea exertional [Recovering/Resolving]
  - Weight increased [Not Recovered/Not Resolved]
  - Fatigue [Unknown]
  - Hypercholesterolaemia [Not Recovered/Not Resolved]
  - Food poisoning [Recovered/Resolved]
  - Pyrexia [Unknown]

NARRATIVE: CASE EVENT DATE: 20250501
